FAERS Safety Report 23818109 (Version 2)
Quarter: 2024Q3

REPORT INFORMATION
  Report Type: Spontaneous
  Country: US (occurrence: None)
  Receive Date: 20240506
  Receipt Date: 20240701
  Transmission Date: 20241016
  Serious: No
  Sender: ASTRAZENECA
  Company Number: 2024A087837

PATIENT
  Sex: Female

DRUGS (1)
  1. BYETTA [Suspect]
     Active Substance: EXENATIDE
     Dosage: 2.4ML UNKNOWN

REACTIONS (5)
  - Hypoacusis [Unknown]
  - Syncope [Unknown]
  - Liquid product physical issue [Unknown]
  - Device use issue [Unknown]
  - Device delivery system issue [Unknown]
